FAERS Safety Report 14558881 (Version 1)
Quarter: 2018Q1

REPORT INFORMATION
  Report Type: Spontaneous
  Country: FR (occurrence: FR)
  Receive Date: 20180221
  Receipt Date: 20180221
  Transmission Date: 20180509
  Serious: Yes (Hospitalization)
  Sender: FDA-Public Use
  Company Number: FR-MYLANLABS-2018M1011133

PATIENT
  Age: 79 Year
  Sex: Female
  Weight: 59 kg

DRUGS (2)
  1. GEMCITABINE [Suspect]
     Active Substance: GEMCITABINE\GEMCITABINE HYDROCHLORIDE
     Indication: HEPATOCELLULAR CARCINOMA
     Dosage: UNK
     Route: 042
  2. OXALIPLATINE HOSPIRA [Suspect]
     Active Substance: OXALIPLATIN
     Indication: HEPATOCELLULAR CARCINOMA
     Route: 042

REACTIONS (1)
  - Laryngospasm [Recovered/Resolved]

NARRATIVE: CASE EVENT DATE: 20170228
